FAERS Safety Report 9869026 (Version 25)
Quarter: 2025Q2

REPORT INFORMATION
  Report Type: Report from Study
  Country: CA (occurrence: CA)
  Receive Date: 20140205
  Receipt Date: 20250602
  Transmission Date: 20250717
  Serious: Yes (Other)
  Sender: ROCHE
  Company Number: CA-ROCHE-1291435

PATIENT
  Age: 74 Year
  Sex: Female
  Weight: 44.0 kg

DRUGS (38)
  1. ACTEMRA [Suspect]
     Active Substance: TOCILIZUMAB
     Indication: Giant cell arteritis
     Route: 042
     Dates: start: 20131008
  2. ACTEMRA [Suspect]
     Active Substance: TOCILIZUMAB
     Route: 042
     Dates: start: 20140325
  3. ACTEMRA [Suspect]
     Active Substance: TOCILIZUMAB
     Route: 042
     Dates: start: 20140617, end: 20161130
  4. ACTEMRA [Suspect]
     Active Substance: TOCILIZUMAB
     Route: 042
  5. ACTEMRA [Suspect]
     Active Substance: TOCILIZUMAB
     Route: 042
  6. ACTEMRA [Suspect]
     Active Substance: TOCILIZUMAB
     Route: 042
  7. ACTEMRA [Suspect]
     Active Substance: TOCILIZUMAB
     Route: 042
  8. ACTEMRA [Suspect]
     Active Substance: TOCILIZUMAB
     Route: 042
  9. ACTEMRA [Suspect]
     Active Substance: TOCILIZUMAB
     Route: 042
  10. ACTEMRA [Suspect]
     Active Substance: TOCILIZUMAB
     Indication: Vasculitis
     Dosage: 0.9 ML ACTPEN
     Route: 058
     Dates: end: 202005
  11. ACTEMRA [Suspect]
     Active Substance: TOCILIZUMAB
     Dosage: 0.9 ML PRE-FILLED
     Route: 058
     Dates: start: 202005, end: 202008
  12. ACTEMRA [Suspect]
     Active Substance: TOCILIZUMAB
     Route: 058
     Dates: start: 202008, end: 202011
  13. ACTEMRA [Suspect]
     Active Substance: TOCILIZUMAB
     Route: 058
     Dates: start: 202011
  14. ACTEMRA [Suspect]
     Active Substance: TOCILIZUMAB
     Route: 058
     Dates: start: 202108, end: 2022
  15. ACTEMRA [Suspect]
     Active Substance: TOCILIZUMAB
     Route: 058
     Dates: start: 2022, end: 2024
  16. ACTEMRA [Suspect]
     Active Substance: TOCILIZUMAB
     Route: 058
     Dates: start: 2024, end: 202501
  17. ACTEMRA [Suspect]
     Active Substance: TOCILIZUMAB
     Route: 058
     Dates: start: 2025
  18. ACTEMRA [Suspect]
     Active Substance: TOCILIZUMAB
     Route: 058
     Dates: start: 202501, end: 2025
  19. DULOXETINE [Suspect]
     Active Substance: DULOXETINE
     Indication: Product used for unknown indication
     Route: 065
     Dates: end: 202502
  20. PREDNISONE [Concomitant]
     Active Substance: PREDNISONE
  21. TYLENOL WITH CODEINE [Concomitant]
     Active Substance: ACETAMINOPHEN\CODEINE PHOSPHATE
  22. TYLENOL [Concomitant]
     Active Substance: ACETAMINOPHEN
  23. PROLIA [Concomitant]
     Active Substance: DENOSUMAB
  24. ASPIRIN [Concomitant]
     Active Substance: ASPIRIN
  25. VITAMIN C [Concomitant]
     Active Substance: ASCORBIC ACID
  26. CRANBERRY [Concomitant]
     Active Substance: CRANBERRY
  27. ASPIRIN [Concomitant]
     Active Substance: ASPIRIN
     Indication: Product used for unknown indication
  28. CALCIUM [Concomitant]
     Active Substance: CALCIUM
     Indication: Product used for unknown indication
  29. GABAPENTIN [Concomitant]
     Active Substance: GABAPENTIN
     Indication: Product used for unknown indication
  30. MAGNESIUM [Concomitant]
     Active Substance: MAGNESIUM
     Indication: Product used for unknown indication
  31. PROLIA [Concomitant]
     Active Substance: DENOSUMAB
     Indication: Product used for unknown indication
  32. ZOPICLONE [Concomitant]
     Active Substance: ZOPICLONE
     Indication: Product used for unknown indication
  33. RAMIPRIL [Concomitant]
     Active Substance: RAMIPRIL
  34. METOPROLOL [Concomitant]
     Active Substance: METOPROLOL
  35. CRESTOR [Concomitant]
     Active Substance: ROSUVASTATIN CALCIUM
     Route: 048
  36. BRILINTA [Concomitant]
     Active Substance: TICAGRELOR
  37. VITAMIN D [Concomitant]
     Active Substance: VITAMIN D NOS
  38. ZOPICLONE [Concomitant]
     Active Substance: ZOPICLONE

REACTIONS (33)
  - Productive cough [Not Recovered/Not Resolved]
  - Nausea [Recovered/Resolved]
  - Oropharyngeal pain [Recovered/Resolved]
  - Off label use [Unknown]
  - Chest pain [Recovered/Resolved]
  - Headache [Recovering/Resolving]
  - Fatigue [Not Recovered/Not Resolved]
  - Chest discomfort [Not Recovered/Not Resolved]
  - Neutrophil count decreased [Unknown]
  - Abdominal distension [Unknown]
  - Pain [Not Recovered/Not Resolved]
  - Pain in jaw [Recovering/Resolving]
  - Chest discomfort [Recovered/Resolved]
  - Weight increased [Not Recovered/Not Resolved]
  - Weight decreased [Unknown]
  - Infusion related reaction [Recovered/Resolved]
  - Irritable bowel syndrome [Recovering/Resolving]
  - Blood pressure diastolic increased [Unknown]
  - Dental restoration failure [Unknown]
  - Asthenia [Unknown]
  - Abdominal pain [Unknown]
  - Glaucoma [Unknown]
  - Sleep disorder [Unknown]
  - Leukopenia [Unknown]
  - Transaminases increased [Unknown]
  - Headache [Unknown]
  - Liver function test increased [Unknown]
  - Upper respiratory tract infection [Recovered/Resolved]
  - Pain [Not Recovered/Not Resolved]
  - Hepatic enzyme abnormal [Unknown]
  - Cytopenia [Unknown]
  - General physical health deterioration [Unknown]
  - Hepatic enzyme increased [Unknown]

NARRATIVE: CASE EVENT DATE: 20131009
